FAERS Safety Report 6595284-8 (Version None)
Quarter: 2010Q1

REPORT INFORMATION
  Report Type: 
  Country: None (occurrence: None)
  Receive Date: 20100212
  Receipt Date: 20100126
  Transmission Date: 20100710
  Serious: Yes (Death)
  Sender: FDA-Public Use
  Company Number: DSA_42492_2010

PATIENT
  Sex: Female

DRUGS (8)
  1. XENAZINE [Suspect]
     Indication: HUNTINGTON'S CHOREA
     Dosage: (25 MG BID ORAL), (12.5 MG BID ORAL)
     Route: 048
     Dates: start: 20090728, end: 20091001
  2. XENAZINE [Suspect]
     Indication: HUNTINGTON'S CHOREA
     Dosage: (25 MG BID ORAL), (12.5 MG BID ORAL)
     Route: 048
     Dates: start: 20091001, end: 20100101
  3. ZOLOFT [Concomitant]
  4. HALDOL [Concomitant]
  5. ZYPREXA [Concomitant]
  6. LORAZEPAM [Concomitant]
  7. REMERON [Concomitant]
  8. METOCLOPRAMIDE [Concomitant]

REACTIONS (6)
  - ABNORMAL BEHAVIOUR [None]
  - AGGRESSION [None]
  - BLOOD PRESSURE SYSTOLIC DECREASED [None]
  - CRYING [None]
  - DRUG EFFECT DECREASED [None]
  - SCREAMING [None]
